FAERS Safety Report 10192903 (Version 2)
Quarter: 2014Q2

REPORT INFORMATION
  Report Type: Spontaneous
  Country: CA (occurrence: CA)
  Receive Date: 20140523
  Receipt Date: 20140523
  Transmission Date: 20141212
  Serious: Yes (Hospitalization, Other)
  Sender: FDA-Public Use
  Company Number: CA-GILEAD-2013-0087674

PATIENT
  Age: 56 Year
  Sex: Female

DRUGS (7)
  1. AMBRISENTAN [Suspect]
     Indication: PULMONARY HYPERTENSION
     Dosage: 10 MG, QD
     Route: 048
     Dates: start: 20100518, end: 20140509
  2. AMBRISENTAN [Suspect]
     Dosage: 10 MG, QD
     Route: 048
     Dates: start: 20091222, end: 20100101
  3. LASIX                              /00032601/ [Concomitant]
  4. REVATIO [Concomitant]
  5. SYNTHROID [Concomitant]
  6. VITAMIN B [Concomitant]
  7. VITAMIN D                          /00318501/ [Concomitant]

REACTIONS (6)
  - Surgery [Unknown]
  - Mechanical ventilation [Not Recovered/Not Resolved]
  - Dyspnoea [Not Recovered/Not Resolved]
  - Fluid retention [Recovered/Resolved]
  - Localised oedema [Recovered/Resolved]
  - Malaise [Not Recovered/Not Resolved]
